FAERS Safety Report 19770942 (Version 2)
Quarter: 2021Q3

REPORT INFORMATION
  Report Type: Spontaneous
  Country: AU (occurrence: AU)
  Receive Date: 20210901
  Receipt Date: 20210916
  Transmission Date: 20211014
  Serious: Yes (Other)
  Sender: FDA-Public Use
  Company Number: AU-BEH-2021135349

PATIENT
  Age: 66 Year
  Sex: Male
  Weight: 97 kg

DRUGS (1)
  1. HIZENTRA [Suspect]
     Active Substance: HUMAN IMMUNOGLOBULIN G
     Indication: HYPOGAMMAGLOBULINAEMIA
     Dosage: 10 GRAM, QW
     Route: 058
     Dates: start: 20210720

REACTIONS (4)
  - Injection site swelling [Recovered/Resolved]
  - Injection site infection [Recovered/Resolved]
  - Injection site necrosis [Recovered/Resolved]
  - Injection site erythema [Recovered/Resolved]

NARRATIVE: CASE EVENT DATE: 20210720
